FAERS Safety Report 16135740 (Version 1)
Quarter: 2019Q1

REPORT INFORMATION
  Report Type: Other
  Country: CA (occurrence: CA)
  Receive Date: 20190329
  Receipt Date: 20190329
  Transmission Date: 20190418
  Serious: Yes (Other)
  Sender: FDA-Public Use
  Company Number: CA-LANTHEUS-LMI-2019-00231

PATIENT
  Age: 43 Year
  Sex: Male
  Weight: 49 kg

DRUGS (1)
  1. GALLIUM [Suspect]
     Active Substance: GALLIUM CITRATE GA-67
     Indication: PRODUCT USED FOR UNKNOWN INDICATION
     Dosage: 189 BQ, UNK
     Route: 042

REACTIONS (2)
  - Erythema [Unknown]
  - Face oedema [Unknown]
